FAERS Safety Report 12375522 (Version 1)
Quarter: 2016Q2

REPORT INFORMATION
  Report Type: Spontaneous
  Country: DE (occurrence: DE)
  Receive Date: 20160517
  Receipt Date: 20160517
  Transmission Date: 20160815
  Serious: Yes (Hospitalization)
  Sender: FDA-Public Use
  Company Number: DE-IMPAX LABORATORIES, INC-2016-IPXL-00507

PATIENT
  Age: 78 Month
  Sex: Male

DRUGS (2)
  1. LAMOTRIGINE. [Concomitant]
     Active Substance: LAMOTRIGINE
     Indication: EPILEPSY
     Dosage: UNK
     Route: 065
  2. DIVALPROEX SODIUM ER [Suspect]
     Active Substance: DIVALPROEX SODIUM
     Indication: EPILEPSY
     Dosage: UNK
     Route: 065

REACTIONS (6)
  - Blood creatine phosphokinase increased [Recovered/Resolved]
  - Encephalopathy [Recovered/Resolved]
  - Dystonia [Recovered/Resolved]
  - Condition aggravated [Recovered/Resolved]
  - Movement disorder [Recovered/Resolved]
  - Hyperthermia [Recovered/Resolved]
